FAERS Safety Report 23308670 (Version 1)
Quarter: 2023Q4

REPORT INFORMATION
  Report Type: Spontaneous
  Country: UA (occurrence: UA)
  Receive Date: 20231218
  Receipt Date: 20231218
  Transmission Date: 20240110
  Serious: Yes (Other)
  Sender: FDA-Public Use
  Company Number: UA-GLAXOSMITHKLINE-UA2023EME171637

PATIENT

DRUGS (1)
  1. VALTREX [Suspect]
     Active Substance: VALACYCLOVIR HYDROCHLORIDE
     Indication: Product used for unknown indication
     Dosage: UNK
     Route: 048
     Dates: start: 2023, end: 2023

REACTIONS (5)
  - Headache [Recovered/Resolved]
  - Hypertension [Recovered/Resolved]
  - Oedema [Recovered/Resolved]
  - Hyperaemia [Recovered/Resolved]
  - Rash [Recovered/Resolved]

NARRATIVE: CASE EVENT DATE: 20230101
